FAERS Safety Report 5315181-5 (Version None)
Quarter: 2007Q2

REPORT INFORMATION
  Report Type: 
  Country: None (occurrence: None)
  Receive Date: 20070502
  Receipt Date: 20070420
  Transmission Date: 20071010
  Serious: Yes (Other)
  Sender: FDA-Public Use
  Company Number: PT-PFIZER INC-2006135721

PATIENT
  Sex: Female

DRUGS (2)
  1. ARTHROTEC [Suspect]
     Indication: OSTEOARTHRITIS
     Route: 048
     Dates: start: 20051123, end: 20060214
  2. AMILORIDE HYDROCHLORIDE [Concomitant]
     Route: 048

REACTIONS (3)
  - GASTRIC ULCER [None]
  - MELAENA [None]
  - UPPER GASTROINTESTINAL HAEMORRHAGE [None]
